FAERS Safety Report 8574062 (Version 7)
Quarter: 2013Q3

REPORT INFORMATION
  Report Type: Report from Study
  Country: DE (occurrence: DE)
  Receive Date: 20120522
  Receipt Date: 20130822
  Transmission Date: 20140515
  Serious: Yes (Death, Hospitalization)
  Sender: FDA-Public Use
  Company Number: DE-UCBSA-057379

PATIENT
  Age: 57 Year
  Sex: Male

DRUGS (13)
  1. CIMZIA [Suspect]
     Indication: POLYARTHRITIS
     Dosage: NO OF DOSES-2
     Route: 058
     Dates: start: 20110930, end: 201110
  2. MTX [Suspect]
     Indication: POLYARTHRITIS
     Dates: start: 200311, end: 200809
  3. MTX [Suspect]
     Indication: POLYARTHRITIS
     Dates: start: 200905
  4. MORPHINE [Concomitant]
     Indication: POLYARTHRITIS
     Route: 048
     Dates: start: 2009, end: 201203
  5. FOLIC ACID [Concomitant]
     Indication: POLYARTHRITIS
     Route: 048
     Dates: start: 2003, end: 201203
  6. MIRTAZAPINE [Concomitant]
     Indication: DEPRESSION
     Route: 048
     Dates: start: 2007, end: 201203
  7. CITALOPRAM [Concomitant]
     Indication: DEPRESSION
     Route: 048
     Dates: start: 2007, end: 201203
  8. METFORMIN [Concomitant]
     Indication: TYPE 2 DIABETES MELLITUS
     Route: 048
     Dates: start: 2009, end: 201203
  9. OMEP [Concomitant]
     Indication: PROPHYLAXIS
     Route: 048
     Dates: start: 2008, end: 201203
  10. METEX [Concomitant]
     Indication: POLYARTHRITIS
     Route: 058
     Dates: start: 2003, end: 201203
  11. PREDNISOLONE AS CORTISONE PULSE [Concomitant]
     Indication: POLYARTHRITIS
     Route: 048
     Dates: start: 2000, end: 201203
  12. HCQ [Concomitant]
     Dosage: 25
  13. SULPHASALAZINE [Concomitant]
     Dosage: 2000

REACTIONS (1)
  - Metastatic bronchial carcinoma [Fatal]
